FAERS Safety Report 21083891 (Version 1)
Quarter: 2022Q3

REPORT INFORMATION
  Report Type: Spontaneous
  Country: GB (occurrence: GB)
  Receive Date: 20220714
  Receipt Date: 20220714
  Transmission Date: 20221027
  Serious: No
  Sender: FDA-Public Use
  Company Number: GB-GW PHARMA-202111GBGW05658

PATIENT

DRUGS (5)
  1. CANNABIDIOL [Suspect]
     Active Substance: CANNABIDIOL
     Indication: Lennox-Gastaut syndrome
     Dosage: 10 MILLIGRAM/KILOGRAM, BID
     Route: 048
  2. CANNABIDIOL [Suspect]
     Active Substance: CANNABIDIOL
     Dosage: 15 MILLIGRAM/KILOGRAM, QD
     Route: 048
  3. CANNABIDIOL [Suspect]
     Active Substance: CANNABIDIOL
     Dosage: 20 MILLIGRAM/KILOGRAM, QD
     Route: 048
  4. CLOBAZAM [Suspect]
     Active Substance: CLOBAZAM
     Indication: Seizure
     Dosage: REDUCTION AND WITHDRAWAL OF MORNING DOSE, LATER FURTHER REDUCTION OF EVENING DOSE
     Route: 065
  5. LEV [Concomitant]
     Indication: Seizure
     Dosage: UNK
     Route: 065

REACTIONS (7)
  - Gait inability [Not Recovered/Not Resolved]
  - Aspartate aminotransferase abnormal [Recovered/Resolved]
  - Seizure [Recovering/Resolving]
  - Gait disturbance [Unknown]
  - Alanine aminotransferase increased [Recovered/Resolved]
  - Somnolence [Unknown]
  - Drug ineffective [Unknown]
